FAERS Safety Report 16005757 (Version 4)
Quarter: 2019Q3

REPORT INFORMATION
  Report Type: Report from Study
  Country: KR (occurrence: KR)
  Receive Date: 20190226
  Receipt Date: 20190827
  Transmission Date: 20191004
  Serious: Yes (Hospitalization, Other)
  Sender: FDA-Public Use
  Company Number: KR-ASTELLAS-2019US006342

PATIENT
  Age: 62 Year
  Sex: Male

DRUGS (6)
  1. ENZALUTAMIDE [Suspect]
     Active Substance: ENZALUTAMIDE
     Route: 048
     Dates: start: 20181217, end: 20190212
  2. LEUPLIN [Concomitant]
     Active Substance: LEUPROLIDE ACETATE
     Indication: PROSTATE CANCER
     Dosage: 11.25 MG, EVERY THREE MONTHS
     Route: 050
  3. CELEBREX [Concomitant]
     Active Substance: CELECOXIB
     Indication: PROSTATE CANCER
     Route: 048
  4. ENZALUTAMIDE [Suspect]
     Active Substance: ENZALUTAMIDE
     Indication: HORMONE-REFRACTORY PROSTATE CANCER
     Route: 048
     Dates: start: 20181119, end: 20181216
  5. AMINAX                             /00028402/ [Concomitant]
     Indication: PROSTATE CANCER
     Route: 048
  6. EPILAM [Concomitant]
     Indication: PROSTATE CANCER
     Route: 048

REACTIONS (7)
  - Nausea [Recovering/Resolving]
  - Back pain [Recovering/Resolving]
  - Dry mouth [Recovering/Resolving]
  - Decreased appetite [Recovering/Resolving]
  - Fatigue [Recovering/Resolving]
  - Feeling abnormal [Recovering/Resolving]
  - Malignant neoplasm progression [Recovering/Resolving]

NARRATIVE: CASE EVENT DATE: 201811
